FAERS Safety Report 26141007 (Version 1)
Quarter: 2025Q4

REPORT INFORMATION
  Report Type: Spontaneous
  Country: US (occurrence: US)
  Receive Date: 20251210
  Receipt Date: 20251210
  Transmission Date: 20260118
  Serious: Yes (Other)
  Sender: BRISTOL-MYERS SQUIBB COMPANY
  Company Number: US-BRISTOL-MYERS SQUIBB COMPANY-2025-165694

PATIENT
  Sex: Male

DRUGS (2)
  1. ELIQUIS [Suspect]
     Active Substance: APIXABAN
     Indication: Atrial fibrillation
  2. ELIQUIS [Suspect]
     Active Substance: APIXABAN

REACTIONS (6)
  - Rectal haemorrhage [Unknown]
  - Epistaxis [Unknown]
  - Cardiac disorder [Unknown]
  - Gingival bleeding [Unknown]
  - Treatment noncompliance [Unknown]
  - Sleep disorder [Unknown]
